FAERS Safety Report 8025131-9 (Version None)
Quarter: 2012Q1

REPORT INFORMATION
  Report Type: 
  Country: None (occurrence: None)
  Receive Date: 20120105
  Receipt Date: 20111230
  Transmission Date: 20120608
  Serious: Yes (Other)
  Sender: FDA-Public Use
  Company Number: CA-ROCHE-1020507

PATIENT
  Sex: Female

DRUGS (4)
  1. XOLAIR [Suspect]
     Indication: SINUSITIS
     Route: 058
     Dates: start: 20110714
  2. XOLAIR [Suspect]
     Indication: ASTHMA
     Route: 058
     Dates: start: 20110512
  3. LEVOFLOXACIN [Concomitant]
     Dates: start: 20110510
  4. ANTIBIOTICS NOS [Concomitant]

REACTIONS (11)
  - HEART RATE INCREASED [None]
  - DYSGEUSIA [None]
  - BLOOD PRESSURE INCREASED [None]
  - RALES [None]
  - RASH [None]
  - COUGH [None]
  - DRUG INEFFECTIVE [None]
  - SPUTUM DISCOLOURED [None]
  - LIMB INJURY [None]
  - ERYTHEMA [None]
  - HEADACHE [None]
